FAERS Safety Report 15254559 (Version 1)
Quarter: 2018Q4

REPORT INFORMATION
  Report Type: Spontaneous
  Country: FR (occurrence: FR)
  Receive Date: 20180808
  Receipt Date: 20180808
  Transmission Date: 20190204
  Serious: Yes (Hospitalization)
  Sender: FDA-Public Use
  Company Number: FR-MYLANLABS-2018M1055960

PATIENT
  Age: 45 Year
  Sex: Female

DRUGS (2)
  1. LAMOTRIGINE MYLAN 200 MG, COMPRIM? DISPERSIBLE [Suspect]
     Active Substance: LAMOTRIGINE
     Dosage: 400 MG, QD
  2. LAMOTRIGINE MYLAN 200 MG, COMPRIM? DISPERSIBLE [Suspect]
     Active Substance: LAMOTRIGINE
     Indication: BIPOLAR DISORDER
     Dosage: 300 MG, QD

REACTIONS (7)
  - Menstrual disorder [Unknown]
  - Contusion [Unknown]
  - Lymphadenopathy [Unknown]
  - Dry eye [Unknown]
  - Anaemia [Unknown]
  - Swelling face [Unknown]
  - Dry mouth [Unknown]

NARRATIVE: CASE EVENT DATE: 2018
